FAERS Safety Report 14161198 (Version 1)
Quarter: 2017Q4

REPORT INFORMATION
  Report Type: Spontaneous
  Country: US (occurrence: US)
  Receive Date: 20171104
  Receipt Date: 20171104
  Transmission Date: 20180321
  Serious: Yes (Disabling)
  Sender: FDA-Public Use
  Company Number: None

PATIENT
  Age: 52 Year
  Sex: Female
  Weight: 81 kg

DRUGS (2)
  1. ZYRTEC [Suspect]
     Active Substance: CETIRIZINE HYDROCHLORIDE
     Indication: SEASONAL ALLERGY
     Dosage: ?          QUANTITY:1 TABLET(S);?
     Route: 048
  2. CENTRUM WOMEN^S DAILY MULTIVITAMIN [Concomitant]

REACTIONS (10)
  - Heart rate increased [None]
  - Pruritus generalised [None]
  - Palpitations [None]
  - Flushing [None]
  - Anxiety [None]
  - Fatigue [None]
  - Night sweats [None]
  - Hepatitis [None]
  - Arthralgia [None]
  - Loss of personal independence in daily activities [None]

NARRATIVE: CASE EVENT DATE: 20171029
